FAERS Safety Report 6299897-2 (Version None)
Quarter: 2009Q3

REPORT INFORMATION
  Report Type: 
  Country: None (occurrence: None)
  Receive Date: 20090806
  Receipt Date: 20090728
  Transmission Date: 20100115
  Serious: Yes (Other)
  Sender: FDA-Public Use
  Company Number: PHHY2009JP31281

PATIENT
  Age: 5 Year

DRUGS (1)
  1. AREDIA [Suspect]
     Indication: LANGERHANS' CELL GRANULOMATOSIS
     Dosage: 30 MG (ON 3 SUCCESSIVE DAYS EVERY 4 WEEKS)
     Route: 042
     Dates: start: 20090601

REACTIONS (1)
  - HYPOGLYCAEMIA [None]
